FAERS Safety Report 11783431 (Version 2)
Quarter: 2015Q4

REPORT INFORMATION
  Report Type: Spontaneous
  Country: US (occurrence: US)
  Receive Date: 20151127
  Receipt Date: 20151203
  Transmission Date: 20160305
  Serious: Yes (Hospitalization)
  Sender: FDA-Public Use
  Company Number: US-HORIZON-RAV-0106-2015

PATIENT
  Age: 4 Year
  Sex: Female

DRUGS (5)
  1. VALINE [Concomitant]
     Active Substance: VALINE
     Indication: ARGININOSUCCINATE SYNTHETASE DEFICIENCY
  2. ISOLEUCINE [Concomitant]
     Active Substance: ISOLEUCINE
     Indication: ARGININOSUCCINATE SYNTHETASE DEFICIENCY
  3. L-ARGININE [Concomitant]
     Active Substance: ARGININE
     Indication: ARGININOSUCCINATE SYNTHETASE DEFICIENCY
  4. RAVICTI [Suspect]
     Active Substance: GLYCEROL PHENYLBUTYRATE
     Indication: ARGININOSUCCINATE SYNTHETASE DEFICIENCY
     Dosage: 2.6 ML THREE TIMES DAILY
     Dates: start: 201404
  5. LEUCINE [Concomitant]
     Active Substance: LEUCINE
     Indication: ARGININOSUCCINATE SYNTHETASE DEFICIENCY

REACTIONS (2)
  - Vomiting [Recovered/Resolved]
  - Gastroenteritis [Recovered/Resolved]

NARRATIVE: CASE EVENT DATE: 20151120
